FAERS Safety Report 4815467-4 (Version None)
Quarter: 2005Q4

REPORT INFORMATION
  Report Type: 
  Country: None (occurrence: None)
  Receive Date: 20051031
  Receipt Date: 20051020
  Transmission Date: 20060501
  Serious: Yes (Hospitalization)
  Sender: FDA-Public Use
  Company Number: US-JNJFOC-20051004524

PATIENT
  Age: 49 Year
  Sex: Female

DRUGS (3)
  1. REMICADE [Suspect]
     Indication: CROHN'S DISEASE
     Route: 042
  2. PREDNISONE [Concomitant]
  3. 6-MP [Concomitant]

REACTIONS (2)
  - DEEP VEIN THROMBOSIS [None]
  - FUNGAL SEPSIS [None]
